FAERS Safety Report 13560250 (Version 11)
Quarter: 2018Q3

REPORT INFORMATION
  Report Type: Spontaneous
  Country: US (occurrence: US)
  Receive Date: 20170518
  Receipt Date: 20180703
  Transmission Date: 20181010
  Serious: No
  Sender: FDA-Public Use
  Company Number: US-PFIZER INC-2017215913

PATIENT
  Age: 63 Year
  Sex: Female

DRUGS (3)
  1. IBRANCE [Suspect]
     Active Substance: PALBOCICLIB
     Dosage: 75 MG, CYCLIC (DAILY X 21D, 7 OFF)
     Route: 048
     Dates: start: 20170515
  2. IBRANCE [Suspect]
     Active Substance: PALBOCICLIB
     Indication: BREAST CANCER FEMALE
     Dosage: 75 MG, CYCLIC (DAILY FOR 21 DAYS)
     Route: 048
     Dates: start: 201703, end: 2017
  3. IBRANCE [Suspect]
     Active Substance: PALBOCICLIB
     Dosage: 100 MG, CYCLIC (DAILY FOR 21 DAYS)
     Route: 048
     Dates: start: 20170405, end: 2017

REACTIONS (8)
  - Myalgia [Unknown]
  - Full blood count decreased [Unknown]
  - White blood cell count decreased [Unknown]
  - Stomatitis [Unknown]
  - Arthralgia [Not Recovered/Not Resolved]
  - Alopecia [Unknown]
  - Fatigue [Not Recovered/Not Resolved]
  - Bone pain [Not Recovered/Not Resolved]

NARRATIVE: CASE EVENT DATE: 2017
